FAERS Safety Report 23347391 (Version 8)
Quarter: 2024Q3

REPORT INFORMATION
  Report Type: Spontaneous
  Country: US (occurrence: US)
  Receive Date: 20231228
  Receipt Date: 20240826
  Transmission Date: 20241017
  Serious: Yes (Hospitalization, Other)
  Sender: PFIZER
  Company Number: US-PFIZER INC-PV202300207547

PATIENT
  Age: 85 Year
  Sex: Female

DRUGS (1)
  1. IBRANCE [Suspect]
     Active Substance: PALBOCICLIB
     Dosage: 125 MG

REACTIONS (18)
  - Full blood count abnormal [Unknown]
  - Diarrhoea [Unknown]
  - Infection [Unknown]
  - Weight decreased [Unknown]
  - Eating disorder [Recovered/Resolved]
  - Decreased activity [Unknown]
  - Back pain [Unknown]
  - Fatigue [Not Recovered/Not Resolved]
  - Haemoglobin abnormal [Unknown]
  - White blood cell count abnormal [Unknown]
  - Alopecia [Unknown]
  - Decreased appetite [Recovered/Resolved]
  - Rash macular [Not Recovered/Not Resolved]
  - Skin lesion [Unknown]
  - Impaired healing [Unknown]
  - Rash [Recovered/Resolved]
  - Pruritus [Recovering/Resolving]
  - Dry skin [Unknown]
